FAERS Safety Report 8125958-9 (Version None)
Quarter: 2012Q1

REPORT INFORMATION
  Report Type: 
  Country: None (occurrence: None)
  Receive Date: 20120209
  Receipt Date: 20120207
  Transmission Date: 20120608
  Serious: Yes (Other)
  Sender: FDA-Public Use
  Company Number: US-ROCHE-794141

PATIENT
  Sex: Female
  Weight: 124.85 kg

DRUGS (4)
  1. ACCUTANE [Suspect]
     Indication: ACNE CYSTIC
     Route: 065
     Dates: start: 19890101, end: 19980101
  2. ACCUTANE [Suspect]
     Dates: start: 19900101, end: 19920101
  3. ACCUTANE [Suspect]
     Dates: start: 20020101, end: 20080101
  4. ACCUTANE [Suspect]
     Dates: start: 19940101, end: 19960101

REACTIONS (6)
  - IRRITABLE BOWEL SYNDROME [None]
  - BIPOLAR DISORDER [None]
  - POST-TRAUMATIC STRESS DISORDER [None]
  - INFLAMMATORY BOWEL DISEASE [None]
  - ANXIETY [None]
  - DEPRESSION [None]
